FAERS Safety Report 8126558-7 (Version None)
Quarter: 2012Q1

REPORT INFORMATION
  Report Type: 
  Country: None (occurrence: None)
  Receive Date: 20120210
  Receipt Date: 20120130
  Transmission Date: 20120608
  Serious: Yes (Hospitalization)
  Sender: FDA-Public Use
  Company Number: NL-AMGEN-NLDCT2012001517

PATIENT
  Age: 61 Year
  Sex: Male

DRUGS (8)
  1. CLOBETASOL PROPIONATE [Concomitant]
     Dosage: UNK UNK, UNK
  2. ETANERCEPT [Suspect]
     Indication: PSORIATIC ARTHROPATHY
     Dosage: 50 MG, QWK
     Dates: start: 20080731
  3. DICLOFENAC SODIUM [Suspect]
     Indication: UPPER LIMB FRACTURE
     Dosage: UNK
  4. CALCITRIOL [Concomitant]
     Dosage: UNK UNK, UNK
  5. CALCIPOTRIENE [Concomitant]
     Dosage: UNK UNK, UNK
  6. ACETYLSALICYLIC ACID SRT [Concomitant]
     Dosage: UNK UNK, UNK
  7. BETAMETHASONE [Concomitant]
     Dosage: UNK UNK, UNK
  8. KETOCONAZOLE [Concomitant]
     Dosage: UNK UNK, UNK

REACTIONS (1)
  - INTESTINAL HAEMORRHAGE [None]
